FAERS Safety Report 16062670 (Version 1)
Quarter: 2019Q1

REPORT INFORMATION
  Report Type: Spontaneous
  Country: US (occurrence: US)
  Receive Date: 20190312
  Receipt Date: 20190312
  Transmission Date: 20190418
  Serious: Yes (Other)
  Sender: FDA-Public Use
  Company Number: US-TEVA-2019-US-1022900

PATIENT
  Age: 81 Year
  Sex: Male
  Weight: 86.18 kg

DRUGS (4)
  1. NIACIN. [Suspect]
     Active Substance: NIACIN
     Indication: VITAMIN SUPPLEMENTATION
     Dates: start: 2017
  2. CENTRUM SILVER FOR MEN [Suspect]
     Active Substance: MINERALS\VITAMINS
     Route: 048
  3. VITAMIN B12 [Concomitant]
     Active Substance: CYANOCOBALAMIN
  4. VITAMIN D [Concomitant]
     Active Substance: CHOLECALCIFEROL

REACTIONS (3)
  - Autoimmune disorder [Unknown]
  - Rash erythematous [Unknown]
  - Rash pruritic [Unknown]

NARRATIVE: CASE EVENT DATE: 2017
